FAERS Safety Report 4829322-7 (Version None)
Quarter: 2005Q4

REPORT INFORMATION
  Report Type: 
  Country: None (occurrence: None)
  Receive Date: 20051115
  Receipt Date: 20051115
  Transmission Date: 20060501
  Serious: No
  Sender: FDA-Public Use
  Company Number: None

PATIENT
  Sex: Male
  Weight: 74.3899 kg

DRUGS (2)
  1. LOSARTAN POTASSIUM [Suspect]
     Indication: HYPERTENSION
     Dosage: 100MG   ONCE DAILY   PO
     Route: 048
     Dates: start: 20050726, end: 20050809
  2. ATENOLOL [Concomitant]

REACTIONS (1)
  - NASAL CONGESTION [None]
